FAERS Safety Report 22254176 (Version 1)
Quarter: 2023Q2

REPORT INFORMATION
  Report Type: Spontaneous
  Country: US (occurrence: None)
  Receive Date: 20230425
  Receipt Date: 20230425
  Transmission Date: 20230722
  Serious: Yes (Other)
  Sender: FDA-Public Use
  Company Number: None

PATIENT
  Age: 71 Year
  Sex: Female
  Weight: 86.85 kg

DRUGS (2)
  1. LENVIMA [Suspect]
     Active Substance: LENVATINIB
     Indication: Endometrial cancer
     Dosage: FREQUENCY : DAILY;?
     Route: 048
     Dates: start: 20230222
  2. PEMBROLIZUMAB [Concomitant]
     Active Substance: PEMBROLIZUMAB
     Dates: start: 20230221

REACTIONS (3)
  - Hypertension [None]
  - Bone pain [None]
  - Pruritus [None]

NARRATIVE: CASE EVENT DATE: 20230411
